FAERS Safety Report 5322117-X (Version None)
Quarter: 2007Q1

REPORT INFORMATION
  Report Type: 
  Country: None (occurrence: None)
  Receive Date: 20070222
  Receipt Date: 20061030
  Transmission Date: 20070707
  Serious: Yes (Other)
  Sender: FDA-Public Use
  Company Number: HQWYE776330OCT06

PATIENT
  Age: 50 Year
  Sex: Male

DRUGS (2)
  1. EFFEXOR [Suspect]
     Indication: ANXIETY DISORDER
     Dosage: ORAL
     Route: 048
  2. LEXAPRO [Suspect]
     Indication: ANXIETY DISORDER
     Dosage: 20 MG 1X PER 1 DAY; ORAL
     Route: 048

REACTIONS (1)
  - CONVULSION [None]
